FAERS Safety Report 9540434 (Version 2)
Quarter: 2013Q3

REPORT INFORMATION
  Report Type: Spontaneous
  Country: US (occurrence: US)
  Receive Date: 20130920
  Receipt Date: 20130926
  Transmission Date: 20140515
  Serious: Yes (Other)
  Sender: FDA-Public Use
  Company Number: US-BAYER-2013-113481

PATIENT
  Age: 60 Year
  Sex: Male
  Weight: 90.7 kg

DRUGS (5)
  1. ALEVE TABLET [Suspect]
     Indication: MYALGIA
     Dosage: 2 DF, ONCE
     Route: 048
     Dates: start: 20130916, end: 20130916
  2. ALEVE TABLET [Suspect]
     Indication: BACK PAIN
  3. BABY ASPIRIN [Concomitant]
     Indication: ISCHAEMIC HEART DISEASE PROPHYLAXIS
     Dosage: 1 DF, QD
     Route: 048
  4. LISINOPRIL [Concomitant]
  5. ALLOPURINOL [Concomitant]

REACTIONS (2)
  - Blood urine present [Recovered/Resolved]
  - Drug ineffective [None]
